FAERS Safety Report 8606852 (Version 4)
Quarter: 2014Q2

REPORT INFORMATION
  Report Type: Spontaneous
  Country: US (occurrence: US)
  Receive Date: 20120611
  Receipt Date: 20140522
  Transmission Date: 20141212
  Serious: Yes (Hospitalization)
  Sender: FDA-Public Use
  Company Number: US-ASTRAZENECA-2012SE35362

PATIENT
  Age: 73 Year
  Sex: Female
  Weight: 55.8 kg

DRUGS (24)
  1. NEXIUM [Suspect]
     Indication: GASTROOESOPHAGEAL REFLUX DISEASE
     Dosage: TWO TIMES PER DAY
     Route: 048
  2. NEXIUM [Suspect]
     Indication: DYSPEPSIA
     Dosage: TWO TIMES PER DAY
     Route: 048
  3. NEXIUM [Suspect]
     Indication: GASTROOESOPHAGEAL REFLUX DISEASE
     Route: 048
     Dates: start: 20060612
  4. NEXIUM [Suspect]
     Indication: DYSPEPSIA
     Route: 048
     Dates: start: 20060612
  5. NEXIUM [Suspect]
     Indication: GASTROOESOPHAGEAL REFLUX DISEASE
     Route: 048
     Dates: start: 20080612
  6. NEXIUM [Suspect]
     Indication: DYSPEPSIA
     Route: 048
     Dates: start: 20080612
  7. DEXILANT [Concomitant]
  8. PANTOPRAZOLE SOD [Concomitant]
  9. PANTOPRAZOLE SOD [Concomitant]
     Route: 048
     Dates: start: 20080417
  10. PREDNISONE [Concomitant]
     Route: 048
     Dates: start: 20060102
  11. AMBIEN [Concomitant]
     Route: 048
     Dates: start: 20061004
  12. ALENDRONATE SODIUM [Concomitant]
     Route: 048
     Dates: start: 20080313
  13. CLONAZEPAM [Concomitant]
     Route: 048
     Dates: start: 20080404
  14. CALCIUM [Concomitant]
     Dates: start: 20110105
  15. B COMPLEX [Concomitant]
     Dates: start: 20120803
  16. CYMBALTA [Concomitant]
     Route: 048
     Dates: start: 20111025
  17. IRON [Concomitant]
     Route: 048
     Dates: start: 20120904
  18. VITAMIN D3 [Concomitant]
     Route: 048
     Dates: start: 20111021
  19. PRILOSEC [Concomitant]
     Route: 048
     Dates: start: 20120507
  20. CYCLOBENZAPRINE [Concomitant]
     Dates: start: 20050928
  21. METHYLPREDNISOLONE [Concomitant]
     Dates: start: 20060117
  22. DEXAMETHASONE [Concomitant]
     Dates: start: 20080612
  23. PREVACID [Concomitant]
     Dates: start: 20070103
  24. TRAMADOL HCL [Concomitant]
     Dates: start: 20070227

REACTIONS (9)
  - Bladder disorder [Unknown]
  - Osteoporosis [Unknown]
  - Multiple fractures [Unknown]
  - Arthritis [Unknown]
  - Calcium deficiency [Unknown]
  - Road traffic accident [Unknown]
  - Rheumatoid arthritis [Unknown]
  - Osteopenia [Unknown]
  - Intervertebral disc degeneration [Unknown]
